FAERS Safety Report 9458429 (Version 1)
Quarter: 2013Q3

REPORT INFORMATION
  Report Type: Spontaneous
  Country: DE (occurrence: DE)
  Receive Date: 20130814
  Receipt Date: 20130814
  Transmission Date: 20140515
  Serious: Yes (Hospitalization, Congenital Anomaly, Other)
  Sender: FDA-Public Use
  Company Number: GXKR2013DE002685

PATIENT
  Sex: 0

DRUGS (2)
  1. MIRTAZAPINE [Suspect]
     Dosage: MATERNAL DOSE: 30 [MG/D ] (GW 0 - 5)
     Route: 064
  2. FOLSAN [Concomitant]
     Dosage: MATERNAL DOSE: 0.8 [MG/D ]
     Route: 064

REACTIONS (6)
  - Congenital diaphragmatic hernia [Recovered/Resolved with Sequelae]
  - Hypospadias [Unknown]
  - Cryptorchism [Recovering/Resolving]
  - Inguinal hernia [Unknown]
  - Patent ductus arteriosus [Recovered/Resolved]
  - Small for dates baby [Unknown]
